FAERS Safety Report 20382696 (Version 2)
Quarter: 2022Q1

REPORT INFORMATION
  Report Type: Spontaneous
  Country: US (occurrence: US)
  Receive Date: 20220127
  Receipt Date: 20220331
  Transmission Date: 20220424
  Serious: No
  Sender: FDA-Public Use
  Company Number: US-PFIZER INC-202200114104

PATIENT
  Age: 66 Year
  Sex: Male

DRUGS (7)
  1. INLYTA [Suspect]
     Active Substance: AXITINIB
     Dosage: 5 MG, 2X/DAY, STOPPED, OFF FOR 3 WEEKS
     Route: 048
     Dates: start: 20211203
  2. INLYTA [Suspect]
     Active Substance: AXITINIB
     Dosage: 3 MG, 2X/DAY
     Dates: start: 20220107
  3. AMLODIPINE BESYLATE [Concomitant]
     Active Substance: AMLODIPINE BESYLATE
     Dosage: UNK
  4. ECHINACEA [Concomitant]
     Active Substance: ECHINACEA, UNSPECIFIED
     Dosage: UNK
  5. KEYTRUDA [Concomitant]
     Active Substance: PEMBROLIZUMAB
     Dosage: UNK
  6. LORATADINE [Concomitant]
     Active Substance: LORATADINE
     Dosage: UNK
  7. TYLENOL [Concomitant]
     Active Substance: ACETAMINOPHEN
     Dosage: UNK

REACTIONS (25)
  - Eye pain [Recovering/Resolving]
  - Muscular weakness [Recovering/Resolving]
  - Apathy [Recovering/Resolving]
  - Somnolence [Recovering/Resolving]
  - Chills [Recovering/Resolving]
  - Feeling cold [Recovering/Resolving]
  - Temperature regulation disorder [Recovering/Resolving]
  - Dry skin [Recovering/Resolving]
  - Musculoskeletal pain [Recovering/Resolving]
  - Blood pressure increased [Recovering/Resolving]
  - Glossodynia [Not Recovered/Not Resolved]
  - Gingival pain [Recovering/Resolving]
  - Decreased appetite [Recovering/Resolving]
  - Dysphonia [Recovering/Resolving]
  - Arthritis [Recovering/Resolving]
  - Muscle spasms [Recovering/Resolving]
  - Blood test abnormal [Recovering/Resolving]
  - Pruritus [Recovering/Resolving]
  - Glossodynia [Not Recovered/Not Resolved]
  - Glossodynia [Not Recovered/Not Resolved]
  - Dry mouth [Not Recovered/Not Resolved]
  - Dyspepsia [Recovering/Resolving]
  - Tremor [Not Recovered/Not Resolved]
  - Flatulence [Not Recovered/Not Resolved]
  - Increased appetite [Unknown]
